FAERS Safety Report 16205507 (Version 1)
Quarter: 2019Q2

REPORT INFORMATION
  Report Type: Spontaneous
  Country: DE (occurrence: DE)
  Receive Date: 20190417
  Receipt Date: 20190417
  Transmission Date: 20190711
  Serious: Yes (Other)
  Sender: FDA-Public Use
  Company Number: DE-TEVA-2018-DE-959314

PATIENT
  Age: 40 Year
  Sex: Female
  Weight: 62 kg

DRUGS (1)
  1. COPAXONE [Suspect]
     Active Substance: GLATIRAMER ACETATE
     Indication: MULTIPLE SCLEROSIS
     Dosage: 1 DOSAGE FORMS DAILY; DAILY 20MG/ML
     Route: 058
     Dates: start: 200503, end: 20180912

REACTIONS (13)
  - Palpitations [Not Recovered/Not Resolved]
  - Muscle spasms [Unknown]
  - Hot flush [Unknown]
  - Erythema [Unknown]
  - Anxiety [Not Recovered/Not Resolved]
  - Dyspnoea [Unknown]
  - Circulatory collapse [Unknown]
  - Cardiovascular disorder [Unknown]
  - Respiratory arrest [Unknown]
  - Anaphylactic shock [Unknown]
  - Dystonia [Unknown]
  - Rash macular [Recovered/Resolved]
  - Heart rate increased [Not Recovered/Not Resolved]

NARRATIVE: CASE EVENT DATE: 20180912
